FAERS Safety Report 6973003-0 (Version None)
Quarter: 2010Q3

REPORT INFORMATION
  Report Type: 
  Country: None (occurrence: None)
  Receive Date: 20100909
  Receipt Date: 20100831
  Transmission Date: 20110219
  Serious: Yes (Other)
  Sender: FDA-Public Use
  Company Number: IE-SANOFI-AVENTIS-2010SA031766

PATIENT
  Age: 44 Year
  Sex: Male

DRUGS (6)
  1. CLEXANE [Suspect]
     Route: 058
     Dates: start: 20100517, end: 20100524
  2. CARVEDILOL [Concomitant]
     Route: 048
     Dates: start: 20100517
  3. THIAMINE HCL [Concomitant]
     Route: 048
     Dates: start: 20100517, end: 20100524
  4. ALDACTONE [Concomitant]
     Route: 048
     Dates: start: 20100517
  5. BUMEX [Concomitant]
     Route: 048
     Dates: start: 20100517
  6. DIGOXIN [Concomitant]
     Route: 048
     Dates: start: 20100517

REACTIONS (2)
  - ATRIAL THROMBOSIS [None]
  - OFF LABEL USE [None]
